FAERS Safety Report 6399313-6 (Version None)
Quarter: 2009Q4

REPORT INFORMATION
  Report Type: 
  Country: None (occurrence: None)
  Receive Date: 20091014
  Receipt Date: 20071115
  Transmission Date: 20100525
  Serious: Yes (Other)
  Sender: FDA-Public Use
  Company Number: US-ASTRAZENECA-2007UW19595

PATIENT
  Age: 50 Year
  Sex: Male
  Weight: 113.4 kg

DRUGS (7)
  1. SEROQUEL [Suspect]
     Indication: SLEEP DISORDER
     Route: 048
     Dates: start: 19990101, end: 20040101
  2. SEROQUEL [Suspect]
     Dosage: 30-200 MG
     Route: 048
     Dates: start: 20000101
  3. WELLBUTRIN [Concomitant]
     Dates: start: 20000101
  4. LIPITOR [Concomitant]
     Dosage: 20 MG AT EVENING
     Dates: start: 20020101
  5. ACCUPRIL [Concomitant]
     Dates: start: 20020101
  6. PLAVIX [Concomitant]
     Dates: start: 20020101
  7. LOPRESSOR [Concomitant]
     Dates: start: 20020101

REACTIONS (6)
  - DIABETES MELLITUS [None]
  - DIABETES MELLITUS INADEQUATE CONTROL [None]
  - DIABETIC NEPHROPATHY [None]
  - DIABETIC NEUROPATHY [None]
  - PANCREATITIS ACUTE [None]
  - TYPE 2 DIABETES MELLITUS [None]
